FAERS Safety Report 5052763-2 (Version None)
Quarter: 2006Q3

REPORT INFORMATION
  Report Type: 
  Country: None (occurrence: None)
  Receive Date: 20060717
  Receipt Date: 20060522
  Transmission Date: 20061208
  Serious: Yes (Other)
  Sender: FDA-Public Use
  Company Number: ES-ROCHE-449070

PATIENT
  Age: 38 Year
  Sex: Female

DRUGS (1)
  1. INVIRASE [Suspect]
     Indication: HIV INFECTION
     Route: 065
     Dates: start: 20060212

REACTIONS (1)
  - HYPERSOMNIA [None]
